FAERS Safety Report 15207529 (Version 4)
Quarter: 2020Q4

REPORT INFORMATION
  Report Type: Spontaneous
  Country: US (occurrence: US)
  Receive Date: 20180727
  Receipt Date: 20201111
  Transmission Date: 20210113
  Serious: No
  Sender: FDA-Public Use
  Company Number: US-SA-2018SA203034

PATIENT

DRUGS (21)
  1. VITAMIN C [Concomitant]
     Active Substance: ASCORBIC ACID
     Dosage: UNK
  2. ZINC. [Concomitant]
     Active Substance: ZINC
  3. MELATONIN [Concomitant]
     Active Substance: MELATONIN
  4. VITAMIN E [Concomitant]
     Active Substance: .ALPHA.-TOCOPHEROL
  5. PREDNISONE. [Concomitant]
     Active Substance: PREDNISONE
  6. PROTOPIC [Concomitant]
     Active Substance: TACROLIMUS
  7. PENICILLAMINE [Concomitant]
     Active Substance: PENICILLAMINE
  8. OMEGA 3 [FISH OIL] [Concomitant]
     Active Substance: FISH OIL
  9. LORATADINE. [Concomitant]
     Active Substance: LORATADINE
  10. MAGNESIUM [Concomitant]
     Active Substance: MAGNESIUM
  11. ALLEGRA ALLERGY [Concomitant]
     Active Substance: FEXOFENADINE HYDROCHLORIDE
  12. VITAMIN B COMPLEX [Concomitant]
     Active Substance: CYANOCOBALAMIN\DEXPANTHENOL\NIACINAMIDE\PYRIDOXINE HYDROCHLORIDE\RIBOFLAVIN 5^-PHOSPHATE SODIUM\THIAMINE HYDROCHLORIDE\VITAMIN B COMPLEX
  13. VITAMIN B6 [Concomitant]
     Active Substance: PYRIDOXINE HYDROCHLORIDE
  14. PROBIOTICS NOS [Concomitant]
     Active Substance: PROBIOTICS NOS
  15. AMPHETAMINE SULFATE. [Concomitant]
     Active Substance: AMPHETAMINE SULFATE
  16. ASPIRIN [ACETYLSALICYLIC ACID] [Concomitant]
     Active Substance: ASPIRIN
  17. AMBIEN [Concomitant]
     Active Substance: ZOLPIDEM TARTRATE
  18. DUPIXENT [Suspect]
     Active Substance: DUPILUMAB
     Indication: DERMATITIS ATOPIC
     Dosage: 300 MG, QOW
     Route: 058
     Dates: start: 20180613
  19. IRON [Concomitant]
     Active Substance: IRON
  20. VITAMIN D [VITAMIN D NOS] [Concomitant]
     Active Substance: VITAMIN D NOS
  21. VENTOLINE [SALBUTAMOL] [Concomitant]
     Active Substance: ALBUTEROL SULFATE

REACTIONS (5)
  - Allergic sinusitis [Unknown]
  - Rash macular [Unknown]
  - Alopecia [Unknown]
  - Ear infection [Unknown]
  - Condition aggravated [Unknown]

NARRATIVE: CASE EVENT DATE: 2018
